FAERS Safety Report 9479466 (Version 2)
Quarter: 2013Q3

REPORT INFORMATION
  Report Type: Report from Study
  Country: DE (occurrence: DE)
  Receive Date: 20130827
  Receipt Date: 20130927
  Transmission Date: 20140515
  Serious: Yes (Hospitalization)
  Sender: FDA-Public Use
  Company Number: DE-ROCHE-1266660

PATIENT
  Age: 67 Year
  Sex: Female

DRUGS (7)
  1. RITUXIMAB [Suspect]
     Indication: RHEUMATOID ARTHRITIS
     Route: 065
     Dates: start: 20070425
  2. RITUXIMAB [Suspect]
     Route: 065
     Dates: start: 20110215
  3. PREDNISOLON [Concomitant]
     Route: 065
     Dates: start: 1990
  4. VOLTAREN [Concomitant]
     Route: 065
     Dates: start: 1995
  5. LISINOPRIL [Concomitant]
     Route: 065
     Dates: start: 2000
  6. FOSAMAX [Concomitant]
     Route: 065
     Dates: start: 2000
  7. BENDAMUSTINE [Concomitant]

REACTIONS (3)
  - B-cell lymphoma recurrent [Unknown]
  - Fracture [Unknown]
  - VIth nerve paralysis [Unknown]
